FAERS Safety Report 4358798-7 (Version None)
Quarter: 2004Q2

REPORT INFORMATION
  Report Type: 
  Country: None (occurrence: None)
  Receive Date: 20040517
  Receipt Date: 20030130
  Transmission Date: 20050107
  Serious: Yes (Other)
  Sender: FDA-Public Use
  Company Number: PHEH2003US01141

PATIENT
  Age: 62 Year
  Sex: Female

DRUGS (2)
  1. ZOMETA [Suspect]
     Indication: BREAST CANCER
  2. CHEMOTHERAPEUTICS,OTHER [Concomitant]

REACTIONS (4)
  - CHRONIC SINUSITIS [None]
  - FISTULA [None]
  - OSTECTOMY [None]
  - OSTEONECROSIS [None]
